FAERS Safety Report 23404711 (Version 1)
Quarter: 2024Q1

REPORT INFORMATION
  Report Type: Spontaneous
  Country: US (occurrence: US)
  Receive Date: 20240116
  Receipt Date: 20240116
  Transmission Date: 20240409
  Serious: No
  Sender: FDA-Public Use
  Company Number: US-PERRIGO-23US006472

PATIENT
  Age: 87 Year
  Sex: Female
  Weight: 63.492 kg

DRUGS (2)
  1. PERMETHRIN [Suspect]
     Active Substance: PERMETHRIN
     Indication: Lice infestation
     Dosage: 280 MG, SINGLE
     Route: 061
     Dates: start: 20230529, end: 20230529
  2. PERMETHRIN [Suspect]
     Active Substance: PERMETHRIN
     Dosage: 280 MG, SINGLE
     Route: 061
     Dates: start: 20230525, end: 20230525

REACTIONS (1)
  - Inappropriate schedule of product administration [Recovered/Resolved]

NARRATIVE: CASE EVENT DATE: 20230529
